FAERS Safety Report 4277340-2 (Version None)
Quarter: 2004Q1

REPORT INFORMATION
  Report Type: 
  Country: None (occurrence: None)
  Receive Date: 20040121
  Receipt Date: 20040113
  Transmission Date: 20041129
  Serious: Yes (Other)
  Sender: FDA-Public Use
  Company Number: US-JNJFOC-20040102355

PATIENT
  Age: 22 Year
  Sex: Male

DRUGS (1)
  1. REMICADE [Suspect]
     Indication: RHEUMATOID ARTHRITIS
     Dosage: INTRAVENOUS
     Route: 042

REACTIONS (4)
  - ANTINUCLEAR ANTIBODY POSITIVE [None]
  - CONDITION AGGRAVATED [None]
  - PERICARDITIS [None]
  - RHEUMATOID ARTHRITIS [None]
